FAERS Safety Report 13528010 (Version 1)
Quarter: 2017Q2

REPORT INFORMATION
  Report Type: Report from Study
  Country: US (occurrence: US)
  Receive Date: 20170509
  Receipt Date: 20170509
  Transmission Date: 20170830
  Serious: Yes (Hospitalization)
  Sender: FDA-Public Use
  Company Number: US-PFIZER INC-2017157013

PATIENT
  Age: 50 Year
  Sex: Female
  Weight: 72 kg

DRUGS (4)
  1. ONDANSETRON [Suspect]
     Active Substance: ONDANSETRON
  2. LORAZEPAM. [Suspect]
     Active Substance: LORAZEPAM
  3. VS-6063 [Suspect]
     Active Substance: DEFACTINIB
     Indication: OVARIAN CANCER
     Dosage: 400 MG PO BID, CYCLIC
     Route: 048
     Dates: start: 20161230, end: 20170129
  4. MORPHINE SULFATE. [Suspect]
     Active Substance: MORPHINE SULFATE

REACTIONS (4)
  - Abdominal pain [Not Recovered/Not Resolved]
  - Nausea [Not Recovered/Not Resolved]
  - Constipation [Not Recovered/Not Resolved]
  - Confusional state [Not Recovered/Not Resolved]

NARRATIVE: CASE EVENT DATE: 20170124
